FAERS Safety Report 19973193 (Version 4)
Quarter: 2023Q2

REPORT INFORMATION
  Report Type: Report from Study
  Country: FR (occurrence: FR)
  Receive Date: 20211020
  Receipt Date: 20230531
  Transmission Date: 20230721
  Serious: Yes (Hospitalization, Other)
  Sender: FDA-Public Use
  Company Number: FR-BRISTOL-MYERS SQUIBB COMPANY-BMS-2021-105972

PATIENT
  Age: 47 Year
  Sex: Female
  Weight: 73.5 kg

DRUGS (2)
  1. NIVOLUMAB [Suspect]
     Active Substance: NIVOLUMAB
     Indication: Triple negative breast cancer
     Route: 042
     Dates: start: 20210917, end: 20211005
  2. IPILIMUMAB [Suspect]
     Active Substance: IPILIMUMAB
     Indication: Triple negative breast cancer
     Route: 042
     Dates: start: 20210917, end: 20211005

REACTIONS (2)
  - Immune-mediated hyperthyroidism [Recovered/Resolved]
  - Cardiac disorder [Recovered/Resolved]

NARRATIVE: CASE EVENT DATE: 20211005
